FAERS Safety Report 8261425-X (Version None)
Quarter: 2012Q2

REPORT INFORMATION
  Report Type: 
  Country: None (occurrence: None)
  Receive Date: 20120405
  Receipt Date: 20120329
  Transmission Date: 20120825
  Serious: Yes (Other)
  Sender: FDA-Public Use
  Company Number: SE-PFIZER INC-2012081056

PATIENT
  Age: 74 Year
  Sex: Female

DRUGS (1)
  1. TOLTERODINE TARTRATE [Suspect]
     Indication: INCONTINENCE
     Dosage: UNK

REACTIONS (6)
  - SKIN EXFOLIATION [None]
  - BLADDER DYSFUNCTION [None]
  - DRY SKIN [None]
  - PAIN IN EXTREMITY [None]
  - MENTAL DISORDER [None]
  - SUICIDAL IDEATION [None]
